FAERS Safety Report 24275371 (Version 2)
Quarter: 2024Q3

REPORT INFORMATION
  Report Type: Spontaneous
  Country: US (occurrence: US)
  Receive Date: 20240903
  Receipt Date: 20240925
  Transmission Date: 20241017
  Serious: Yes (Other)
  Sender: EMCURE
  Company Number: US-AVET LIFESCIENCES LTD-2024-AVET-000304

PATIENT

DRUGS (3)
  1. DESMOPRESSIN ACETATE [Suspect]
     Active Substance: DESMOPRESSIN ACETATE
     Indication: Pollakiuria
     Dosage: DESMOPRESSIN ACETATE TABLET 0.2 MG
  2. FAMOTIDINE [Concomitant]
     Active Substance: FAMOTIDINE
     Indication: Gastritis
     Dosage: UNK
  3. UNITHROID [Concomitant]
     Active Substance: LEVOTHYROXINE SODIUM
     Indication: Thyroid disorder
     Dosage: UNK

REACTIONS (8)
  - Urinary retention [Unknown]
  - Urinary tract infection [Unknown]
  - Urinary tract discomfort [Unknown]
  - Dysuria [Unknown]
  - Pain [Unknown]
  - Bladder discomfort [Unknown]
  - Fatigue [Unknown]
  - Product substitution issue [Unknown]
